FAERS Safety Report 5149843-X (Version None)
Quarter: 2006Q4

REPORT INFORMATION
  Report Type: 
  Country: None (occurrence: None)
  Receive Date: 20061108
  Receipt Date: 20061027
  Transmission Date: 20070319
  Serious: Yes (Other)
  Sender: FDA-Public Use
  Company Number: 2006113490

PATIENT
  Sex: Female

DRUGS (10)
  1. LYRICA [Suspect]
     Indication: HERPES ZOSTER
     Dosage: 50 MG (50 MG, 1 IN 1 DAY)
     Dates: start: 20060901
  2. DICLOFENAC SODIUM [Concomitant]
  3. HYDROXYCHLOROQUINE PHOSPHATE (HYDROXYCHLOROQUINE PHOSPHATE ) [Concomitant]
  4. RANITIDINE HYDROCHLORIDE [Concomitant]
  5. NIFEDIPINE [Concomitant]
  6. SIMVASTATIN [Concomitant]
  7. TAMOXIFEN CITRATE [Concomitant]
  8. LATANOPROST [Concomitant]
  9. XALCOM [Concomitant]
  10. PILOCARPINE (PILOCARPINE) [Concomitant]

REACTIONS (1)
  - DRUG INEFFECTIVE [None]
